FAERS Safety Report 19498163 (Version 3)
Quarter: 2024Q2

REPORT INFORMATION
  Report Type: Other
  Country: BR (occurrence: BR)
  Receive Date: 20210706
  Receipt Date: 20240611
  Transmission Date: 20240715
  Serious: Yes (Hospitalization, Other)
  Sender: FDA-Public Use
  Company Number: BR-002147023-NVSC2021BR121419

PATIENT
  Age: 54 Year
  Sex: Female
  Weight: 64 kg

DRUGS (5)
  1. XOLAIR [Suspect]
     Active Substance: OMALIZUMAB
     Indication: Urticaria
     Dosage: 300 MG, QMO (2 AMPOULES OF 150MG)
     Route: 058
     Dates: start: 20200713, end: 202103
  2. XOLAIR [Suspect]
     Active Substance: OMALIZUMAB
     Indication: Urticaria
     Dosage: UNK
     Route: 065
     Dates: start: 20210420, end: 20210420
  3. XOLAIR [Suspect]
     Active Substance: OMALIZUMAB
     Route: 065
     Dates: start: 20210420, end: 20210420
  4. XOLAIR [Suspect]
     Active Substance: OMALIZUMAB
     Route: 065
     Dates: start: 20210520
  5. SIMVASTATIN [Concomitant]
     Active Substance: SIMVASTATIN
     Indication: Blood cholesterol
     Route: 048
     Dates: start: 2018

REACTIONS (10)
  - COVID-19 [Not Recovered/Not Resolved]
  - Lung disorder [Not Recovered/Not Resolved]
  - Influenza [Not Recovered/Not Resolved]
  - Skin plaque [Not Recovered/Not Resolved]
  - Pruritus [Not Recovered/Not Resolved]
  - Urticaria [Not Recovered/Not Resolved]
  - Blister [Unknown]
  - Drug ineffective [Unknown]
  - Malaise [Unknown]
  - Eye pruritus [Unknown]

NARRATIVE: CASE EVENT DATE: 20210505
